FAERS Safety Report 5845956-5 (Version None)
Quarter: 2008Q3

REPORT INFORMATION
  Report Type: 
  Country: None (occurrence: None)
  Receive Date: 20080814
  Receipt Date: 20080807
  Transmission Date: 20090109
  Serious: Yes (Life-Threatening, Hospitalization)
  Sender: FDA-Public Use
  Company Number: GB-PFIZER INC-2007102640

PATIENT
  Age: 52 Year
  Sex: Male
  Weight: 80 kg

DRUGS (4)
  1. AMLODIPINE [Suspect]
     Dosage: DAILY DOSE:325MG
  2. ATENOLOL [Suspect]
     Dosage: DAILY DOSE:2000MG
  3. ZOPICLONE [Suspect]
     Dosage: DAILY DOSE:37.5MG
  4. LOSARTAN [Suspect]
     Dosage: DAILY DOSE:2000MG
     Route: 048

REACTIONS (4)
  - ATRIOVENTRICULAR BLOCK FIRST DEGREE [None]
  - BRADYCARDIA [None]
  - HYPOTENSION [None]
  - MULTIPLE DRUG OVERDOSE [None]
